FAERS Safety Report 5989896-X (Version None)
Quarter: 2008Q4

REPORT INFORMATION
  Report Type: 
  Country: None (occurrence: None)
  Receive Date: 20081209
  Receipt Date: 20081202
  Transmission Date: 20090506
  Serious: Yes (Death)
  Sender: FDA-Public Use
  Company Number: 2008JP005513

PATIENT
  Age: 75 Year
  Sex: Female

DRUGS (5)
  1. TACROLIMUS [Suspect]
     Indication: RHEUMATOID ARTHRITIS
     Dosage: 1.5 MG, /D, ORAL
     Route: 048
     Dates: start: 20060403
  2. PREDNISOLONE [Suspect]
     Indication: DRUG USE FOR UNKNOWN INDICATION
     Dosage: 5 MG, /D, ORAL
     Route: 048
  3. ALFAROL(ALFACALCIDOL) PER ORAL NOS [Suspect]
     Indication: DRUG USE FOR UNKNOWN INDICATION
     Dosage: ORAL
     Route: 048
  4. ALENDRONATE SODIUM [Suspect]
     Indication: DRUG USE FOR UNKNOWN INDICATION
     Dosage: ORAL
     Route: 048
  5. VOLTAREN [Suspect]
     Dosage: RECTAL
     Route: 054

REACTIONS (1)
  - DEATH [None]
